FAERS Safety Report 4372708-8 (Version None)
Quarter: 2004Q2

REPORT INFORMATION
  Report Type: 
  Country: None (occurrence: None)
  Receive Date: 20040526
  Receipt Date: 20040513
  Transmission Date: 20050107
  Serious: Yes (Death, Hospitalization, Other)
  Sender: FDA-Public Use
  Company Number: US-JNJFOC-20040306732

PATIENT
  Age: 66 Year
  Sex: Female
  Weight: 91.6266 kg

DRUGS (1)
  1. DURAGESIC [Suspect]
     Indication: PAIN
     Dosage: 75 UG/HR, 1 IN 72 HOUR, TRANSDERMAL
     Route: 062
     Dates: start: 20040218, end: 20040218

REACTIONS (24)
  - ANAEMIA [None]
  - CHRONIC OBSTRUCTIVE AIRWAYS DISEASE [None]
  - DIALYSIS [None]
  - FIBROSIS [None]
  - GASTRITIS EROSIVE [None]
  - GASTROINTESTINAL HAEMORRHAGE [None]
  - HIATUS HERNIA [None]
  - HYPERVOLAEMIA [None]
  - LETHARGY [None]
  - LUNG INFILTRATION [None]
  - MEDICATION ERROR [None]
  - MELAENA [None]
  - MYALGIA [None]
  - NAUSEA [None]
  - OESOPHAGITIS ULCERATIVE [None]
  - PELVIC KIDNEY [None]
  - PHARMACEUTICAL PRODUCT COMPLAINT [None]
  - PLATELET COUNT DECREASED [None]
  - PULMONARY OEDEMA [None]
  - RENAL FAILURE CHRONIC [None]
  - RESPIRATORY FAILURE [None]
  - SOMNOLENCE [None]
  - VOMITING [None]
  - WHITE BLOOD CELL COUNT INCREASED [None]
